FAERS Safety Report 11346265 (Version 1)
Quarter: 2015Q3

REPORT INFORMATION
  Report Type: Spontaneous
  Country: US (occurrence: US)
  Receive Date: 20150803
  Receipt Date: 20150803
  Transmission Date: 20151125
  Serious: No
  Sender: FDA-Public Use
  Company Number: US-ELI_LILLY_AND_COMPANY-US201005003838

PATIENT
  Age: 15 Year
  Sex: Male
  Weight: 79.37 kg

DRUGS (1)
  1. STRATTERA [Suspect]
     Active Substance: ATOMOXETINE HYDROCHLORIDE
     Indication: ATTENTION DEFICIT/HYPERACTIVITY DISORDER
     Dosage: 40 MG, UNK
     Dates: start: 20100429

REACTIONS (3)
  - Depressed mood [Unknown]
  - Anger [Unknown]
  - Sluggishness [Unknown]

NARRATIVE: CASE EVENT DATE: 2010
